FAERS Safety Report 6416868-3 (Version None)
Quarter: 2009Q4

REPORT INFORMATION
  Report Type: 
  Country: None (occurrence: None)
  Receive Date: 20091023
  Receipt Date: 20091005
  Transmission Date: 20100525
  Serious: Yes (Other)
  Sender: FDA-Public Use
  Company Number: IDA-00276

PATIENT
  Age: 26 Year
  Sex: Female

DRUGS (1)
  1. INDERAL [Suspect]
     Dosage: 5 DF ORAL FORMULATION: TABLET
     Route: 048

REACTIONS (1)
  - SUICIDE ATTEMPT [None]
